FAERS Safety Report 14335949 (Version 2)
Quarter: 2018Q1

REPORT INFORMATION
  Report Type: Spontaneous
  Country: FR (occurrence: FR)
  Receive Date: 20171229
  Receipt Date: 20180130
  Transmission Date: 20180509
  Serious: Yes (Hospitalization)
  Sender: FDA-Public Use
  Company Number: FR-CIPLA LTD.-2017FR29130

PATIENT

DRUGS (12)
  1. FOLIC ACID. [Suspect]
     Active Substance: FOLIC ACID
     Indication: ANAEMIA MACROCYTIC
     Dosage: 5 MG, QD
     Route: 048
     Dates: start: 20170313, end: 20170406
  2. VITAMINE B12 DELAGRANGE [Suspect]
     Active Substance: CYANOCOBALAMIN
     Indication: ANAEMIA VITAMIN B12 DEFICIENCY
     Dosage: 1 DF, DAILY
     Route: 048
     Dates: start: 20170311, end: 20170319
  3. PANTOPRAZOLE [Suspect]
     Active Substance: PANTOPRAZOLE
     Dosage: 80 MG, DAILY
     Route: 048
     Dates: start: 20170310, end: 20170406
  4. METFORMIN [Concomitant]
     Active Substance: METFORMIN HYDROCHLORIDE
     Indication: PRODUCT USED FOR UNKNOWN INDICATION
     Dosage: UNK
     Route: 048
  5. LASILIX                            /00032601/ [Suspect]
     Active Substance: FUROSEMIDE
     Indication: OEDEMA PERIPHERAL
     Dosage: 40 MG, DAILY
     Route: 048
     Dates: start: 20170306, end: 20170406
  6. VITAMINE B COMPLEX [Suspect]
     Active Substance: CYANOCOBALAMIN\PYRIDOXINE HYDROCHLORIDE\RIBOFLAVIN\SODIUM PANTOTHENATE\THIAMINE HYDROCHLORIDE\VITAMIN B COMPLEX
     Indication: ANAEMIA VITAMIN B12 DEFICIENCY
     Dosage: 1 DF, DAILY
     Route: 048
     Dates: start: 20170320, end: 20170406
  7. CIPROFLOXACINE ARROW [Suspect]
     Active Substance: CIPROFLOXACIN
     Indication: URINARY TRACT INFECTION
     Dosage: 1000 MG, QD
     Route: 048
     Dates: start: 20170320, end: 20170406
  8. PANTOPRAZOLE [Suspect]
     Active Substance: PANTOPRAZOLE
     Indication: GASTROINTESTINAL HAEMORRHAGE
     Dosage: 200 MG, DAILY
     Route: 042
     Dates: start: 20170307, end: 20170310
  9. DIFFU K [Concomitant]
     Active Substance: POTASSIUM CHLORIDE
     Indication: PRODUCT USED FOR UNKNOWN INDICATION
     Dosage: UNK
     Route: 048
  10. LERCAN [Concomitant]
     Active Substance: LERCANIDIPINE
     Indication: PRODUCT USED FOR UNKNOWN INDICATION
     Dosage: UNK
     Route: 048
  11. ELIQUIS [Concomitant]
     Active Substance: APIXABAN
     Indication: PRODUCT USED FOR UNKNOWN INDICATION
     Dosage: UNK
     Route: 048
  12. LANTUS [Concomitant]
     Active Substance: INSULIN GLARGINE
     Indication: PRODUCT USED FOR UNKNOWN INDICATION
     Dosage: UNK
     Route: 058

REACTIONS (3)
  - Herpes simplex [Recovering/Resolving]
  - Eosinophilia [Recovering/Resolving]
  - Rash maculo-papular [Recovering/Resolving]

NARRATIVE: CASE EVENT DATE: 20170404
